FAERS Safety Report 9503224 (Version 5)
Quarter: 2014Q1

REPORT INFORMATION
  Report Type: Spontaneous
  Country: JP (occurrence: JP)
  Receive Date: 20130906
  Receipt Date: 20140320
  Transmission Date: 20141002
  Serious: Yes (Hospitalization)
  Sender: FDA-Public Use
  Company Number: JP-UCBSA-096989

PATIENT
  Age: 57 Year
  Sex: Male

DRUGS (14)
  1. NEUPRO [Suspect]
     Indication: PARKINSON^S DISEASE
     Dosage: DAILY DOSE: 4 MG
     Route: 062
     Dates: start: 20130808, end: 20130822
  2. NEUPRO [Suspect]
     Indication: PROGRESSIVE SUPRANUCLEAR PALSY
     Dosage: DAILY DOSE: 4 MG
     Route: 062
     Dates: start: 20130808, end: 20130822
  3. NEUPRO [Suspect]
     Indication: PARKINSON^S DISEASE
     Dosage: DAILY DOSE: 2 MG
     Route: 062
     Dates: start: 20130726, end: 20130807
  4. NEUPRO [Suspect]
     Indication: PROGRESSIVE SUPRANUCLEAR PALSY
     Dosage: DAILY DOSE: 2 MG
     Route: 062
     Dates: start: 20130726, end: 20130807
  5. LEVODOPA / CARBIDOPA [Concomitant]
     Dosage: DAILY DOSE: 3 TAB
     Dates: end: 20130725
  6. LEVODOPA / CARBIDOPA [Concomitant]
     Dosage: DAILY DOSE: 6 TAB
     Dates: start: 20130726
  7. AMANTADINE HYDROCHLORIDE [Concomitant]
     Dosage: DAILY DOSE: 150 MG
  8. AMANTADINE HYDROCHLORIDE [Concomitant]
     Dosage: DAILY DOSE: 150 MG
  9. DIHYDROERGOTAMINE MESILATE [Concomitant]
     Dosage: DAILY DOSE: 3 MG
  10. DIHYDROERGOTAMINE MESILATE [Concomitant]
     Dosage: DAILY DOSE: 3 MG
  11. SENNA LEAF [Concomitant]
     Dosage: DAILY DOSE: 0.5 MG
  12. SENNA LEAF [Concomitant]
     Dosage: DAILY DOSE: 0.5 MG
  13. DOMPERIDONE [Concomitant]
     Dosage: DAILY DOSE 30 MG
     Dates: start: 20130302
  14. DOMPERIDONE [Concomitant]
     Dosage: DAILY DOSE 30 MG

REACTIONS (1)
  - Hepatitis acute [Recovered/Resolved]
